FAERS Safety Report 4715155-9 (Version None)
Quarter: 2005Q3

REPORT INFORMATION
  Report Type: 
  Country: None (occurrence: None)
  Receive Date: 20050715
  Receipt Date: 20050706
  Transmission Date: 20060218
  Serious: Yes (Hospitalization)
  Sender: FDA-Public Use
  Company Number: FR-GLAXOSMITHKLINE-B0386959A

PATIENT
  Age: 57 Year
  Sex: Male
  Weight: 57 kg

DRUGS (7)
  1. TRIZIVIR [Suspect]
     Indication: HIV INFECTION
     Route: 048
     Dates: start: 20040529
  2. HAVLANE [Suspect]
     Indication: INSOMNIA
     Route: 048
  3. MELATONIN [Suspect]
     Dosage: 3MG PER DAY
     Route: 048
     Dates: start: 20040601, end: 20050201
  4. IMOVANE [Concomitant]
     Route: 048
  5. XANAX [Concomitant]
     Route: 048
  6. PROZAC [Concomitant]
     Dates: start: 20050201
  7. NORSET [Concomitant]
     Dates: start: 20050301

REACTIONS (9)
  - ABDOMINAL DISTENSION [None]
  - APLASTIC ANAEMIA [None]
  - CONSTIPATION [None]
  - DEPRESSION [None]
  - FATIGUE [None]
  - HYPONATRAEMIA [None]
  - INAPPROPRIATE ANTIDIURETIC HORMONE SECRETION [None]
  - MITOCHONDRIAL CYTOPATHY [None]
  - PAIN IN EXTREMITY [None]
